FAERS Safety Report 7895898-9 (Version None)
Quarter: 2011Q4

REPORT INFORMATION
  Report Type: 
  Country: None (occurrence: None)
  Receive Date: 20111106
  Receipt Date: 20110901
  Transmission Date: 20120403
  Serious: Yes (Other)
  Sender: FDA-Public Use
  Company Number: US-AMGEN-USASP2011044903

PATIENT
  Age: 58 Year
  Sex: Female

DRUGS (16)
  1. METHOTREXATE [Concomitant]
  2. TRIAMTERENE AND HYDROCHLOROTHIAZIDE [Concomitant]
  3. HYDROXYZINE PAM [Concomitant]
  4. LEVOTHYROXINE SODIUM [Concomitant]
  5. FLOVENT HFA [Concomitant]
  6. TIZANIDINE HCL [Concomitant]
  7. VERAPAMIL                          /00014302/ [Concomitant]
  8. RANITIDINE [Concomitant]
  9. LOVASTATIN [Concomitant]
  10. PROAIR HFA [Concomitant]
  11. LORTAB [Concomitant]
  12. TRAZODONE HYDROCHLORIDE [Concomitant]
  13. ENBREL [Suspect]
     Indication: RHEUMATOID ARTHRITIS
     Dosage: 50 MG, QWK
  14. PAROXETINE HCL [Concomitant]
  15. GABAPENTIN [Concomitant]
  16. KLOR-CON [Concomitant]

REACTIONS (2)
  - INJECTION SITE HAEMORRHAGE [None]
  - INJECTION SITE INFLAMMATION [None]
